FAERS Safety Report 8202553-4 (Version None)
Quarter: 2012Q1

REPORT INFORMATION
  Report Type: 
  Country: None (occurrence: None)
  Receive Date: 20120312
  Receipt Date: 20120302
  Transmission Date: 20120608
  Serious: Yes (Other)
  Sender: FDA-Public Use
  Company Number: PHHY2012IT018486

PATIENT
  Age: 86 Year
  Sex: Male

DRUGS (1)
  1. WARFARIN SODIUM [Suspect]
     Indication: ATRIAL FIBRILLATION

REACTIONS (10)
  - HYPERHIDROSIS [None]
  - BLOOD PRESSURE DECREASED [None]
  - ANAEMIA [None]
  - RENAL HAEMATOMA [None]
  - SHOCK [None]
  - FATIGUE [None]
  - SCIATICA [None]
  - BACK PAIN [None]
  - PALLOR [None]
  - DYSPNOEA [None]
